FAERS Safety Report 12745265 (Version 2)
Quarter: 2016Q3

REPORT INFORMATION
  Report Type: Spontaneous
  Country: JP (occurrence: JP)
  Receive Date: 20160915
  Receipt Date: 20160924
  Transmission Date: 20161109
  Serious: Yes (Life-Threatening, Hospitalization, Other)
  Sender: FDA-Public Use
  Company Number: JP-ROCHE-1830544

PATIENT
  Age: 34 Year
  Sex: Male

DRUGS (3)
  1. ROCEPHIN [Suspect]
     Active Substance: CEFTRIAXONE SODIUM
     Indication: OROPHARYNGEAL PAIN
     Dosage: OTHER PURPOSES: THERMACOGENESIS
     Route: 041
     Dates: start: 20160830, end: 20160830
  2. TRANSAMIN [Suspect]
     Active Substance: TRANEXAMIC ACID
     Indication: PHARYNGITIS
     Route: 042
     Dates: start: 20160830, end: 20160830
  3. SHAKUYAKUKANZOTO [Concomitant]
     Active Substance: HERBALS
     Indication: MYALGIA
     Route: 048
     Dates: start: 20160830

REACTIONS (1)
  - Shock [Recovered/Resolved]

NARRATIVE: CASE EVENT DATE: 20160830
